FAERS Safety Report 16576726 (Version 1)
Quarter: 2019Q3

REPORT INFORMATION
  Report Type: Spontaneous
  Country: FR (occurrence: FR)
  Receive Date: 20190716
  Receipt Date: 20190716
  Transmission Date: 20191004
  Serious: Yes (Hospitalization)
  Sender: FDA-Public Use
  Company Number: FR-TEVA-2019-FR-1077040

PATIENT
  Age: 85 Year
  Sex: Female
  Weight: 60 kg

DRUGS (10)
  1. CHLORHYDRATE DE LERCANIDIPINE [Concomitant]
     Active Substance: LERCANIDIPINE HYDROCHLORIDE
  2. NEBIVOLOL (CHLORHYDRATE DE) [Concomitant]
     Active Substance: NEBIVOLOL
  3. UVEDOSE 100 000 UI, SOLUTION BUVABLE EN AMPOULE [Concomitant]
     Active Substance: CHOLECALCIFEROL
     Dosage: 100,000 IU
  4. PREDNISONE. [Suspect]
     Active Substance: PREDNISONE
     Indication: BACK PAIN
     Dosage: UNINFORMED
     Route: 048
     Dates: start: 201906, end: 201906
  5. XARELTO [Concomitant]
     Active Substance: RIVAROXABAN
  6. VISMED [Concomitant]
     Active Substance: HYALURONATE SODIUM
  7. LEVOTHYROX 125 MICROGRAMMES, COMPRIM? S?CABLE [Concomitant]
     Active Substance: LEVOTHYROXINE SODIUM
  8. VALSARTAN. [Concomitant]
     Active Substance: VALSARTAN
  9. DAFALGAN CODEINE [Suspect]
     Active Substance: ACETAMINOPHEN\CODEINE PHOSPHATE
     Indication: BACK PAIN
     Dosage: UNINFORMED
     Route: 048
     Dates: start: 201906
  10. REFRESH CELLUVISC [Concomitant]
     Active Substance: CARBOXYMETHYLCELLULOSE SODIUM

REACTIONS (6)
  - Diarrhoea [Recovered/Resolved]
  - Lipase increased [Recovering/Resolving]
  - Hypokalaemia [Recovered/Resolved]
  - Hyponatraemia [Recovering/Resolving]
  - Vomiting [Recovered/Resolved]
  - Abdominal pain [Recovered/Resolved]

NARRATIVE: CASE EVENT DATE: 20190607
